FAERS Safety Report 17073425 (Version 2)
Quarter: 2020Q1

REPORT INFORMATION
  Report Type: Report from Study
  Country: IT (occurrence: IT)
  Receive Date: 20191126
  Receipt Date: 20200206
  Transmission Date: 20200409
  Serious: Yes (Hospitalization)
  Sender: FDA-Public Use
  Company Number: IT-SA-2019SA319828

PATIENT
  Age: 51 Year
  Sex: Female
  Weight: 55 kg

DRUGS (6)
  1. PERTUZUMAB. [Suspect]
     Active Substance: PERTUZUMAB
     Indication: BREAST CANCER
     Dosage: 2520 MG, Q3W
     Route: 042
     Dates: start: 20170119, end: 20170119
  2. DOCETAXEL. [Suspect]
     Active Substance: DOCETAXEL
     Dosage: 348 MG, Q3W
     Route: 042
     Dates: start: 20170119, end: 20170119
  3. DOCETAXEL. [Suspect]
     Active Substance: DOCETAXEL
     Indication: BREAST CANCER
     Dosage: 116 MG, Q3W
     Route: 042
     Dates: start: 20170418, end: 20170418
  4. TRASTUZUMAB. [Suspect]
     Active Substance: TRASTUZUMAB
     Indication: BREAST CANCER
     Dosage: 24 MG/KG, Q3W
     Route: 042
     Dates: start: 20170119, end: 20170119
  5. TRASTUZUMAB. [Suspect]
     Active Substance: TRASTUZUMAB
     Dosage: 8 MG/KG, Q3W
     Route: 042
     Dates: start: 20170213, end: 20170213
  6. PERTUZUMAB. [Suspect]
     Active Substance: PERTUZUMAB
     Dosage: 2520 MG, Q3W
     Route: 042
     Dates: start: 20170213, end: 20170213

REACTIONS (2)
  - Presyncope [Recovered/Resolved]
  - Paraesthesia [Recovered/Resolved]

NARRATIVE: CASE EVENT DATE: 20170418
